FAERS Safety Report 13298575 (Version 1)
Quarter: 2017Q1

REPORT INFORMATION
  Report Type: Spontaneous
  Country: US (occurrence: US)
  Receive Date: 20170306
  Receipt Date: 20170306
  Transmission Date: 20170428
  Serious: No
  Sender: FDA-Public Use
  Company Number: US-BIOGEN-2017BI00363806

PATIENT
  Sex: Female
  Weight: 43.13 kg

DRUGS (2)
  1. PLEGRIDY [Suspect]
     Active Substance: PEGINTERFERON BETA-1A
     Route: 065
  2. PLEGRIDY [Suspect]
     Active Substance: PEGINTERFERON BETA-1A
     Indication: MULTIPLE SCLEROSIS
     Route: 065
     Dates: start: 20170202

REACTIONS (4)
  - Rash [Unknown]
  - Injection site erythema [Not Recovered/Not Resolved]
  - Weight abnormal [Not Recovered/Not Resolved]
  - Injection site pain [Not Recovered/Not Resolved]
